FAERS Safety Report 14832698 (Version 1)
Quarter: 2018Q2

REPORT INFORMATION
  Report Type: Spontaneous
  Country: US (occurrence: US)
  Receive Date: 20180409
  Receipt Date: 20180409
  Transmission Date: 20180711
  Serious: Yes (Disabling)
  Sender: FDA-Public Use
  Company Number: None

PATIENT
  Age: 52 Year
  Sex: Female
  Weight: 90 kg

DRUGS (6)
  1. METFORMIN [Concomitant]
     Active Substance: METFORMIN HYDROCHLORIDE
  2. JANUVIA [Concomitant]
     Active Substance: SITAGLIPTIN PHOSPHATE
  3. GABAPENTIN. [Suspect]
     Active Substance: GABAPENTIN
     Indication: CHRONIC SPONTANEOUS URTICARIA
     Dosage: ?          QUANTITY:1 CAPSULE(S);?
     Route: 048
     Dates: start: 20171208, end: 20180309
  4. LEVOTHYROXINE. [Concomitant]
     Active Substance: LEVOTHYROXINE
  5. GLIPIZIDE ER [Concomitant]
     Active Substance: GLIPIZIDE
  6. HYDROVYZINE HCT [Concomitant]

REACTIONS (6)
  - Nephrolithiasis [None]
  - Fall [None]
  - Diplopia [None]
  - Eye movement disorder [None]
  - Tremor [None]
  - Muscular weakness [None]

NARRATIVE: CASE EVENT DATE: 20180105
